FAERS Safety Report 16911922 (Version 2)
Quarter: 2019Q4

REPORT INFORMATION
  Report Type: Spontaneous
  Country: US (occurrence: US)
  Receive Date: 20191014
  Receipt Date: 20191114
  Transmission Date: 20200122
  Serious: No
  Sender: FDA-Public Use
  Company Number: US-SA-2019SA278587

PATIENT
  Age: 80 Year
  Sex: Male

DRUGS (1)
  1. TOUJEO [Suspect]
     Active Substance: INSULIN GLARGINE
     Indication: TYPE 2 DIABETES MELLITUS
     Dosage: 58 U, QD
     Route: 065
     Dates: start: 20190920

REACTIONS (7)
  - Orthostatic hypotension [Unknown]
  - Wrong technique in device usage process [Unknown]
  - Blood creatinine increased [Unknown]
  - Dyspnoea exertional [Unknown]
  - Dizziness [Unknown]
  - Pedal pulse decreased [Unknown]
  - Blood glucose increased [Unknown]
